FAERS Safety Report 20574804 (Version 1)
Quarter: 2022Q1

REPORT INFORMATION
  Report Type: Spontaneous
  Country: US (occurrence: US)
  Receive Date: 20220310
  Receipt Date: 20220310
  Transmission Date: 20220423
  Serious: No
  Sender: FDA-Public Use
  Company Number: US-TEVA-2022-US-2006795

PATIENT
  Sex: Female

DRUGS (1)
  1. MUPIROCIN [Suspect]
     Active Substance: MUPIROCIN
     Dosage: 2%
     Route: 044

REACTIONS (3)
  - Product prescribing error [Unknown]
  - Burning sensation [Unknown]
  - Incorrect route of product administration [Unknown]
